FAERS Safety Report 12972352 (Version 1)
Quarter: 2016Q4

REPORT INFORMATION
  Report Type: Spontaneous
  Country: US (occurrence: US)
  Receive Date: 20161124
  Receipt Date: 20161124
  Transmission Date: 20170207
  Serious: No
  Sender: FDA-Public Use
  Company Number: US-PROSTRAKAN-2016-US-0149

PATIENT

DRUGS (4)
  1. SANCUSO [Suspect]
     Active Substance: GRANISETRON
     Dosage: 1 DAY BEFORE CHEMOTHERAPY
     Route: 062
     Dates: start: 20151231
  2. SANCUSO [Suspect]
     Active Substance: GRANISETRON
     Indication: PROPHYLAXIS OF NAUSEA AND VOMITING
     Dosage: 3.1 MG, QD
     Route: 062
     Dates: start: 20160303, end: 20160310
  3. TAXOL [Concomitant]
     Active Substance: PACLITAXEL
     Indication: CHEMOTHERAPY
     Dosage: UNKNOWN
     Route: 065
  4. CARBOPLATIN. [Concomitant]
     Active Substance: CARBOPLATIN
     Indication: CHEMOTHERAPY
     Dosage: UNKNOWN
     Route: 065

REACTIONS (2)
  - Thrombocytopenia [Recovered/Resolved]
  - Incorrect drug administration duration [Recovered/Resolved]

NARRATIVE: CASE EVENT DATE: 20160303
